FAERS Safety Report 4482393-2 (Version None)
Quarter: 2004Q4

REPORT INFORMATION
  Report Type: 
  Country: None (occurrence: None)
  Receive Date: 20041022
  Receipt Date: 20040317
  Transmission Date: 20050328
  Serious: No
  Sender: FDA-Public Use
  Company Number: US-BRISTOL-MYERS SQUIBB COMPANY-12536397

PATIENT
  Age: 34 Year
  Sex: Male
  Weight: 122 kg

DRUGS (9)
  1. BUSPAR [Suspect]
     Indication: ANXIETY
     Dosage: STARTED THERAPY 4 YEARS AGO
     Route: 048
  2. ATIVAN [Concomitant]
  3. CLOZARIL [Concomitant]
  4. ARICEPT [Concomitant]
  5. DIAMOX [Concomitant]
  6. EFFEXOR XR [Concomitant]
  7. LAMICTAL [Concomitant]
  8. PROTONIX [Concomitant]
  9. WELLBUTRIN SR [Concomitant]

REACTIONS (1)
  - HYPERHIDROSIS [None]
